FAERS Safety Report 5323560-5 (Version None)
Quarter: 2007Q2

REPORT INFORMATION
  Report Type: 
  Country: None (occurrence: None)
  Receive Date: 20070514
  Receipt Date: 20070502
  Transmission Date: 20071010
  Serious: Yes (Other)
  Sender: FDA-Public Use
  Company Number: CA-ELI_LILLY_AND_COMPANY-CA200705002320

PATIENT
  Sex: Female

DRUGS (3)
  1. HUMAN INSULIN (RDNA ORIGIN) [Suspect]
     Indication: DIABETES MELLITUS
     Route: 058
  2. HUMALOG [Suspect]
     Indication: DIABETES MELLITUS
     Route: 058
  3. HUMAN INSULIN (RDNA ORIGIN) [Suspect]

REACTIONS (4)
  - ADVERSE DRUG REACTION [None]
  - ADVERSE EVENT [None]
  - CONVULSION [None]
  - LOSS OF CONSCIOUSNESS [None]
